FAERS Safety Report 8953871 (Version 1)
Quarter: 2012Q4

REPORT INFORMATION
  Report Type: 
  Country: US (occurrence: US)
  Receive Date: 20121206
  Receipt Date: 20121206
  Transmission Date: 20130627
  Serious: Yes (Other)
  Sender: FDA-Public Use
  Company Number: CHPA2012US024858

PATIENT
  Age: 92 Year
  Sex: Female

DRUGS (1)
  1. VOLTAREN GEL [Suspect]
     Indication: ARTHRITIS
     Dosage: Unk, Unk
     Route: 061
     Dates: start: 20121202, end: 20121202

REACTIONS (3)
  - Renal impairment [Unknown]
  - Anuria [Unknown]
  - Drug administered at inappropriate site [Unknown]
